FAERS Safety Report 10392642 (Version 8)
Quarter: 2017Q3

REPORT INFORMATION
  Report Type: Spontaneous
  Country: US (occurrence: US)
  Receive Date: 20140819
  Receipt Date: 20170831
  Transmission Date: 20171127
  Serious: Yes (Hospitalization, Other)
  Sender: FDA-Public Use
  Company Number: US-PFIZER INC-2014229028

PATIENT
  Age: 59 Year
  Sex: Male
  Weight: 75.74 kg

DRUGS (16)
  1. LYRICA [Suspect]
     Active Substance: PREGABALIN
     Indication: POST HERPETIC NEURALGIA
     Dosage: 150 MG, 2X/DAY
     Route: 048
     Dates: start: 201206
  2. LYRICA [Suspect]
     Active Substance: PREGABALIN
     Dosage: 150 MG, UNK (150MG TID TO QID)
     Route: 048
  3. LYRICA [Suspect]
     Active Substance: PREGABALIN
     Dosage: 150 MG, 3X/DAY
     Route: 048
  4. OXYCODONE [Concomitant]
     Active Substance: OXYCODONE
     Dosage: UNK
  5. ARTRODAR [Concomitant]
     Active Substance: DIACEREIN
     Dosage: 50 MG, UNK
  6. CYMBALTA [Concomitant]
     Active Substance: DULOXETINE HYDROCHLORIDE
     Dosage: 120 MG, DAILY
     Route: 048
  7. LYRICA [Suspect]
     Active Substance: PREGABALIN
     Dosage: 150 MG, 3X/DAY
     Route: 048
  8. DULOXETINE HCL [Concomitant]
     Active Substance: DULOXETINE HYDROCHLORIDE
     Dosage: 120 MG, DAILY
     Route: 048
  9. DULOXETINE HCL [Concomitant]
     Active Substance: DULOXETINE HYDROCHLORIDE
     Indication: DEPRESSION
     Dosage: 60 MG, 2X/DAY
     Route: 048
     Dates: start: 201207
  10. MORPHINE [Concomitant]
     Active Substance: MORPHINE
     Dosage: 30 MG, ALTERNATE DAY
  11. ADVIL [Concomitant]
     Active Substance: IBUPROFEN
     Indication: OSTEOARTHRITIS
     Dosage: 200 MG, AS NEEDED (1 TABLET AS NEEDED, EVERY 6 HRS)
     Route: 048
  12. PRILOCAINE [Concomitant]
     Active Substance: PRILOCAINE
     Indication: HERPES ZOSTER
     Dosage: UNK
  13. DULOXETINE HCL [Concomitant]
     Active Substance: DULOXETINE HYDROCHLORIDE
     Indication: MAJOR DEPRESSION
     Dosage: 120 MG, DAILY
  14. MORPHINE [Concomitant]
     Active Substance: MORPHINE
     Indication: PAIN
     Dosage: 20 MG, EVERY THREE OR FOUR DAYS
  15. MORPHINE SULFATE. [Concomitant]
     Active Substance: MORPHINE SULFATE
     Indication: POST HERPETIC NEURALGIA
     Dosage: 30 MG, 1 TABLET AS NEEDED, ORALLY, EVERY 4 HRS
     Route: 048
     Dates: end: 20170203
  16. MELOXICAM. [Concomitant]
     Active Substance: MELOXICAM
     Indication: OSTEOARTHRITIS
     Dosage: 7.5 MG, 1-2 TABLETS, ORALLY, ONCE A DAY
     Route: 048
     Dates: end: 20170217

REACTIONS (10)
  - Insomnia [Not Recovered/Not Resolved]
  - Intentional product use issue [Unknown]
  - Spinal fracture [Recovered/Resolved]
  - Pain [Unknown]
  - Pruritus [Not Recovered/Not Resolved]
  - Depression [Recovering/Resolving]
  - Irritability [Unknown]
  - Somnolence [Recovering/Resolving]
  - Weight increased [Recovered/Resolved]
  - Amnesia [Not Recovered/Not Resolved]

NARRATIVE: CASE EVENT DATE: 2012
